FAERS Safety Report 6551328-0 (Version None)
Quarter: 2010Q1

REPORT INFORMATION
  Report Type: 
  Country: None (occurrence: None)
  Receive Date: 20100126
  Receipt Date: 20100120
  Transmission Date: 20100710
  Serious: Yes (Death)
  Sender: FDA-Public Use
  Company Number: US-WYE-H13090210

PATIENT
  Age: 55 Year
  Sex: Female
  Weight: 49 kg

DRUGS (8)
  1. VENLAFAXINE HCL [Suspect]
     Dosage: UNKNOWN
  2. CITALOPRAM [Suspect]
     Dosage: UNKNOWN
  3. AMFETAMINE [Suspect]
     Dosage: UNKNOWN
  4. METHADONE HCL [Suspect]
     Dosage: UNKNOWN
  5. MIRTAZAPINE [Suspect]
     Dosage: UNKNOWN
  6. CODEINE [Suspect]
     Dosage: UNKNOWN
  7. CYMBALTA [Suspect]
  8. DIPHENHYDRAMINE [Suspect]
     Dosage: UNKNOWN

REACTIONS (1)
  - DRUG TOXICITY [None]
